FAERS Safety Report 16292580 (Version 1)
Quarter: 2019Q2

REPORT INFORMATION
  Report Type: Other
  Country: US (occurrence: US)
  Receive Date: 20190509
  Receipt Date: 20190509
  Transmission Date: 20190711
  Serious: No
  Sender: FDA-Public Use
  Company Number: US-ALKERMES INC.-ALK-2018-003338

PATIENT
  Age: 41 Year
  Sex: Female

DRUGS (2)
  1. VIVITROL [Suspect]
     Active Substance: NALTREXONE
     Dosage: 380 MG, QMO
     Route: 030
     Dates: start: 20171212
  2. VIVITROL [Suspect]
     Active Substance: NALTREXONE
     Indication: ALCOHOLISM
     Dosage: 380 MG, QMO
     Route: 058
     Dates: start: 20180314

REACTIONS (4)
  - Injection site reaction [Unknown]
  - Wrong technique in product usage process [Unknown]
  - Injection site mass [Unknown]
  - Weight increased [Unknown]

NARRATIVE: CASE EVENT DATE: 20180314
